FAERS Safety Report 6395873-X (Version None)
Quarter: 2009Q4

REPORT INFORMATION
  Report Type: 
  Country: None (occurrence: None)
  Receive Date: 20091009
  Receipt Date: 20090728
  Transmission Date: 20100525
  Serious: No
  Sender: FDA-Public Use
  Company Number: A0800149A

PATIENT
  Age: 51 Year
  Sex: Male

DRUGS (1)
  1. TYKERB [Suspect]
     Dosage: 5TAB PER DAY
     Route: 065
     Dates: start: 20090626

REACTIONS (2)
  - DECREASED APPETITE [None]
  - OFF LABEL USE [None]
